FAERS Safety Report 13008963 (Version 1)
Quarter: 2016Q4

REPORT INFORMATION
  Report Type: Spontaneous
  Country: US (occurrence: US)
  Receive Date: 20161208
  Receipt Date: 20161208
  Transmission Date: 20170207
  Serious: Yes (Death, Other)
  Sender: FDA-Public Use
  Company Number: US-PFIZER INC-2016567762

PATIENT
  Age: 58 Year
  Sex: Male

DRUGS (2)
  1. EPINEPHRINE. [Suspect]
     Active Substance: EPINEPHRINE
     Dosage: 0.12 MG/ML, UNK (EPINEPHRINE AT 10 MCG/MIN WITH A CONCENTRATION OF 0.12MG/ML)
     Route: 042
  2. LEVOPHED [Concomitant]
     Active Substance: NOREPINEPHRINE BITARTRATE
     Dosage: 14MCG/MIN
     Route: 042

REACTIONS (10)
  - Respiratory failure [Fatal]
  - Multiple organ dysfunction syndrome [Fatal]
  - Cardiac failure congestive [Fatal]
  - Product quality issue [Unknown]
  - Acute respiratory distress syndrome [Fatal]
  - Shock [Fatal]
  - Cardiac failure [Fatal]
  - Incorrect dose administered by device [Unknown]
  - Pulmonary embolism [Fatal]
  - Arrhythmia [Unknown]

NARRATIVE: CASE EVENT DATE: 201604
